FAERS Safety Report 7547157-1 (Version None)
Quarter: 2011Q2

REPORT INFORMATION
  Report Type: 
  Country: None (occurrence: None)
  Receive Date: 20110614
  Receipt Date: 20110606
  Transmission Date: 20111010
  Serious: Yes (Hospitalization, Other)
  Sender: FDA-Public Use
  Company Number: US-BAYER-201033320NA

PATIENT
  Age: 21 Year
  Sex: Female
  Weight: 58.05 kg

DRUGS (12)
  1. YAZ [Suspect]
     Indication: MUSCLE SPASMS
  2. CALCIUM CARBONATE [Concomitant]
  3. YAZ [Suspect]
     Indication: CONTRACEPTION
     Dates: start: 20060801, end: 20070901
  4. ADVAIR DISKUS 100/50 [Concomitant]
     Dosage: 0.250 MG, QD
     Route: 055
  5. NEXIUM [Concomitant]
     Dosage: 40 MG, BID
     Route: 048
  6. CELEBREX [Concomitant]
     Dosage: UNK UNK, PRN
  7. YAZ [Suspect]
     Indication: DYSMENORRHOEA
  8. ALBUTEROL SULFATE AUTOHALER [Concomitant]
  9. MULTI-VITAMIN [Concomitant]
     Dosage: UNK UNK, QD
  10. ASCORBIC ACID [Concomitant]
  11. SINGULAIR [Concomitant]
     Dosage: 10 MG, QD
     Route: 048
  12. FERROUS SULFATE TAB [Concomitant]

REACTIONS (5)
  - PAIN [None]
  - PULMONARY HYPERTENSION [None]
  - MYOCARDIAL STRAIN [None]
  - PULMONARY EMBOLISM [None]
  - DEEP VEIN THROMBOSIS [None]
